FAERS Safety Report 11100306 (Version 1)
Quarter: 2015Q2

REPORT INFORMATION
  Report Type: Spontaneous
  Country: GB (occurrence: None)
  Receive Date: 20150507
  Receipt Date: 20150507
  Transmission Date: 20150821
  Serious: Yes (Disabling)
  Sender: FDA-Public Use
  Company Number: None

PATIENT
  Age: 50 Year
  Sex: Female
  Weight: 48 kg

DRUGS (1)
  1. MUPIROCIN MUPIROCIN CREAM 2% [Suspect]
     Active Substance: MUPIROCIN
     Indication: SKIN DISORDER
     Dosage: APPLIEDD TO A SURFACE, USUALLY THE SKIN
     Route: 061

REACTIONS (7)
  - Drug hypersensitivity [None]
  - Burning sensation [None]
  - Malaise [None]
  - Headache [None]
  - Abdominal pain upper [None]
  - Adverse drug reaction [None]
  - Rash pruritic [None]

NARRATIVE: CASE EVENT DATE: 20130430
